FAERS Safety Report 8248934-4 (Version None)
Quarter: 2012Q2

REPORT INFORMATION
  Report Type: 
  Country: None (occurrence: None)
  Receive Date: 20120402
  Receipt Date: 20120321
  Transmission Date: 20120825
  Serious: Yes (Hospitalization, Other)
  Sender: FDA-Public Use
  Company Number: JP-BRISTOL-MYERS SQUIBB COMPANY-15426158

PATIENT
  Age: 69 Year
  Sex: Male

DRUGS (3)
  1. TRUVADA [Suspect]
     Indication: HIV INFECTION
     Dosage: DOUBLE DOSE OF MEDICATION FOR TWO WEEKS.1DF=2TABLET ALSO 1TAB/D
     Route: 048
     Dates: start: 20101122, end: 20101203
  2. REYATAZ [Suspect]
     Indication: HIV INFECTION
     Dosage: DOUBLE DOSE OF MEDICATION FOR TWO WEEKS
     Route: 048
     Dates: start: 20101122, end: 20101203
  3. NORVIR [Suspect]
     Indication: HIV INFECTION
     Dosage: (NOVIR)DOUBLE DOSE OF MEDICATION FOR TWO WEEKS
     Route: 048
     Dates: start: 20101122, end: 20101203

REACTIONS (2)
  - OVERDOSE [None]
  - RENAL IMPAIRMENT [None]
